FAERS Safety Report 9873292 (Version 2)
Quarter: 2014Q1

REPORT INFORMATION
  Report Type: Spontaneous
  Country: US (occurrence: US)
  Receive Date: 20140206
  Receipt Date: 20140206
  Transmission Date: 20141002
  Serious: No
  Sender: FDA-Public Use
  Company Number: US-ACORDA-ACO_20608_2010

PATIENT
  Sex: Female
  Weight: 65.76 kg

DRUGS (8)
  1. GEMFIBROZIL [Concomitant]
     Indication: PRODUCT USED FOR UNKNOWN INDICATION
     Dosage: UNK
  2. DIMETHYL FUMARATE [Concomitant]
     Indication: PRODUCT USED FOR UNKNOWN INDICATION
     Dosage: UNK
  3. AMPYRA [Suspect]
     Indication: GAIT DISTURBANCE
     Dosage: 10 MG, QD
     Route: 048
     Dates: start: 201003, end: 201009
  4. AMPYRA [Suspect]
     Dosage: UNK
     Dates: start: 201011, end: 201011
  5. AMPYRA [Suspect]
     Dosage: UNK
  6. TYSABRI [Concomitant]
     Indication: MULTIPLE SCLEROSIS
     Dosage: UNK
     Dates: start: 20090318
  7. BACLOFEN [Concomitant]
     Indication: PRODUCT USED FOR UNKNOWN INDICATION
     Dosage: UNK
  8. ENABLEX [Concomitant]
     Indication: PRODUCT USED FOR UNKNOWN INDICATION
     Dosage: UNK

REACTIONS (4)
  - Myalgia [Unknown]
  - Muscle spasticity [Unknown]
  - Insomnia [Recovered/Resolved]
  - Headache [Not Recovered/Not Resolved]
